FAERS Safety Report 5337183-5 (Version None)
Quarter: 2007Q2

REPORT INFORMATION
  Report Type: 
  Country: None (occurrence: None)
  Receive Date: 20070529
  Receipt Date: 20070517
  Transmission Date: 20071010
  Serious: Yes (Death, Other)
  Sender: FDA-Public Use
  Company Number: BR-PFIZER INC-2007041112

PATIENT

DRUGS (2)
  1. ZITHROMAC [Suspect]
     Indication: VAGINAL INFECTION
     Route: 048
     Dates: start: 20060501, end: 20060501
  2. GINO PLETIL [Suspect]
     Indication: VAGINAL INFECTION
     Route: 067
     Dates: start: 20060501, end: 20060501

REACTIONS (3)
  - DEATH [None]
  - DRUG EXPOSURE DURING PREGNANCY [None]
  - GROWTH RETARDATION [None]
